FAERS Safety Report 10495497 (Version 1)
Quarter: 2014Q3

REPORT INFORMATION
  Report Type: Spontaneous
  Country: US (occurrence: None)
  Receive Date: 20140815
  Receipt Date: 20140815
  Transmission Date: 20150326
  Serious: Yes (Other)
  Sender: FDA-Public Use
  Company Number: ADR-2014-00017

PATIENT
  Age: 59 Year
  Sex: Male

DRUGS (15)
  1. ACTOS [Suspect]
     Active Substance: PIOGLITAZONE HYDROCHLORIDE
  2. GLIPIZIDE. [Suspect]
     Active Substance: GLIPIZIDE
  3. NAPROXEN. [Suspect]
     Active Substance: NAPROXEN
  4. MORPHINE [Suspect]
     Active Substance: MORPHINE
  5. AGGRENOX [Suspect]
     Active Substance: ASPIRIN\DIPYRIDAMOLE
  6. ALLOPURINOL. [Suspect]
     Active Substance: ALLOPURINOL
  7. GABAPENTIN. [Suspect]
     Active Substance: GABAPENTIN
  8. FOLIC ACID. [Suspect]
     Active Substance: FOLIC ACID
  9. LIORESAL [Suspect]
     Active Substance: BACLOFEN
     Indication: MUSCLE SPASTICITY
  10. FLUOXETINE [Suspect]
     Active Substance: FLUOXETINE\FLUOXETINE HYDROCHLORIDE
  11. TIZANIDINE [Suspect]
     Active Substance: TIZANIDINE
  12. LISINOPRIL. [Suspect]
     Active Substance: LISINOPRIL
  13. PRAVACHOL [Suspect]
     Active Substance: PRAVASTATIN SODIUM
  14. BYETTA [Suspect]
     Active Substance: EXENATIDE
  15. TRICOR [Suspect]
     Active Substance: FENOFIBRATE

REACTIONS (2)
  - No therapeutic response [None]
  - Hypertonia [None]

NARRATIVE: CASE EVENT DATE: 20130102
